FAERS Safety Report 9648549 (Version 1)
Quarter: 2013Q4

REPORT INFORMATION
  Report Type: Spontaneous
  Country: US (occurrence: None)
  Receive Date: 20131024
  Receipt Date: 20131024
  Transmission Date: 20140711
  Serious: Yes (Other)
  Sender: FDA-Public Use
  Company Number: FK201304691

PATIENT
  Age: 66 Year
  Sex: Female

DRUGS (5)
  1. CALCITRIOL [Suspect]
     Indication: HYPOCALCAEMIA
     Dosage: 0.25UG/D, ORAL
     Route: 048
  2. CHOLECALCIFEROL [Suspect]
     Indication: HYPOCALCAEMIA
  3. ASPIRIN WITH CALCIUM [Suspect]
     Indication: HYPOCALCAEMIA
  4. MULTIVITAMIN WITH CALCIUM [Suspect]
     Indication: HYPOCALCAEMIA
  5. CALCIUM [Suspect]
     Indication: HYPOCALCAEMIA

REACTIONS (5)
  - Calciphylaxis [None]
  - Pain [None]
  - Ulcer [None]
  - Blood phosphorus increased [None]
  - Purpura [None]
